FAERS Safety Report 8182738-6 (Version None)
Quarter: 2012Q1

REPORT INFORMATION
  Report Type: 
  Country: None (occurrence: None)
  Receive Date: 20120301
  Receipt Date: 20120301
  Transmission Date: 20120608
  Serious: No
  Sender: FDA-Public Use
  Company Number: None

PATIENT
  Sex: Female
  Weight: 81.6475 kg

DRUGS (1)
  1. TRAMADOL HCL [Suspect]
     Indication: SPONDYLOLISTHESIS
     Dosage: ONE TABLET TWO OR THREE A DAY BY MOUTH
     Route: 048
     Dates: start: 20120120, end: 20120205

REACTIONS (5)
  - THERAPEUTIC RESPONSE DECREASED [None]
  - RASH PRURITIC [None]
  - RASH ERYTHEMATOUS [None]
  - TINNITUS [None]
  - HALLUCINATION [None]
